FAERS Safety Report 11375091 (Version 1)
Quarter: 2015Q3

REPORT INFORMATION
  Report Type: Spontaneous
  Country: US (occurrence: None)
  Receive Date: 20150812
  Receipt Date: 20150812
  Transmission Date: 20151125
  Serious: Yes (Hospitalization)
  Sender: FDA-Public Use
  Company Number: None

PATIENT
  Age: 65 Year
  Sex: Female

DRUGS (30)
  1. ASA [Concomitant]
     Active Substance: ASPIRIN
  2. RENVELA [Concomitant]
     Active Substance: SEVELAMER CARBONATE
  3. PENTOXIFYLLINE. [Concomitant]
     Active Substance: PENTOXIFYLLINE
  4. MINITRAN PATCH (NITROGLYCERINE PATCH) [Concomitant]
  5. AZITHROMYCIN [Concomitant]
     Active Substance: AZITHROMYCIN ANHYDROUS
  6. PANTOPRAZOLE [Concomitant]
     Active Substance: PANTOPRAZOLE SODIUM
  7. METOPROLOL [Concomitant]
     Active Substance: METOPROLOL
  8. IV FLUIDS [Concomitant]
     Active Substance: UNSPECIFIED INGREDIENT
  9. ENALAPRIL [Concomitant]
     Active Substance: ENALAPRIL
  10. FUROSEMIDE. [Concomitant]
     Active Substance: FUROSEMIDE
  11. PLAVIX [Concomitant]
     Active Substance: CLOPIDOGREL BISULFATE
  12. PREDNISONE. [Concomitant]
     Active Substance: PREDNISONE
  13. HUMALOG [Concomitant]
     Active Substance: INSULIN LISPRO
  14. PROCARDIA [Concomitant]
     Active Substance: NIFEDIPINE
  15. SYSTANE BALANCE [Concomitant]
     Active Substance: PROPYLENE GLYCOL
  16. PENTOXIFYLLINE. [Concomitant]
     Active Substance: PENTOXIFYLLINE
  17. NIFEDIPINE. [Concomitant]
     Active Substance: NIFEDIPINE
  18. RANIBIZUMAB [Suspect]
     Active Substance: RANIBIZUMAB
     Indication: DIABETIC RETINAL OEDEMA
     Dosage: 0.3 MG PRN INTRAVITREAL
     Dates: start: 20120917, end: 20150603
  19. BIOTIN [Concomitant]
     Active Substance: BIOTIN
  20. CRESTOR [Concomitant]
     Active Substance: ROSUVASTATIN CALCIUM
  21. ISOSORB MONO ER [Concomitant]
  22. ZEGERID [Concomitant]
     Active Substance: OMEPRAZOLE\SODIUM BICARBONATE
  23. MULTIVITAMIN [Concomitant]
     Active Substance: VITAMINS
  24. LEVEMIR [Concomitant]
     Active Substance: INSULIN DETEMIR
  25. NEPHIDIPINE [Concomitant]
  26. GLUCOPHAGE [Concomitant]
     Active Substance: METFORMIN HYDROCHLORIDE
  27. FUROSEMIDE. [Concomitant]
     Active Substance: FUROSEMIDE
  28. VITAMIN D [Concomitant]
     Active Substance: CHOLECALCIFEROL
  29. METOPROLOL [Concomitant]
     Active Substance: METOPROLOL
  30. ENALAPRIL [Concomitant]
     Active Substance: ENALAPRIL

REACTIONS (1)
  - Coronary artery occlusion [None]

NARRATIVE: CASE EVENT DATE: 20150629
